FAERS Safety Report 6379889-5 (Version None)
Quarter: 2009Q3

REPORT INFORMATION
  Report Type: 
  Country: None (occurrence: None)
  Receive Date: 20090928
  Receipt Date: 20090916
  Transmission Date: 20100115
  Serious: Yes (Other)
  Sender: FDA-Public Use
  Company Number: PHEH2009US11018

PATIENT
  Sex: Female

DRUGS (1)
  1. EXJADE [Suspect]
     Dosage: 1125 MG, QD
     Route: 048
     Dates: start: 20061010, end: 20090723

REACTIONS (1)
  - PULMONARY OEDEMA [None]
